FAERS Safety Report 23703746 (Version 4)
Quarter: 2025Q1

REPORT INFORMATION
  Report Type: Spontaneous
  Country: US (occurrence: US)
  Receive Date: 20240403
  Receipt Date: 20250204
  Transmission Date: 20250408
  Serious: Yes (Other)
  Sender: NOVARTIS
  Company Number: US-002147023-NVSC2024US070530

PATIENT
  Age: 26 Year
  Sex: Female

DRUGS (16)
  1. MYFORTIC [Suspect]
     Active Substance: MYCOPHENOLATE SODIUM
     Indication: Liver transplant
     Dosage: 720 MG, BID
     Route: 048
     Dates: start: 2022, end: 20240328
  2. PANTOPRAZOLE [Concomitant]
     Active Substance: PANTOPRAZOLE
     Indication: Gastric ulcer
     Dosage: 40 MG, QD
     Route: 065
     Dates: start: 2018
  3. VITAMIN D [Concomitant]
     Active Substance: VITAMIN D NOS
     Indication: Liver transplant
     Dosage: 5 UG, BID
     Route: 065
     Dates: start: 2018
  4. VITAMIN D [Concomitant]
     Active Substance: VITAMIN D NOS
     Indication: Bone density abnormal
  5. MINERALS\VITAMINS [Concomitant]
     Active Substance: MINERALS\VITAMINS
     Indication: Liver transplant
     Dosage: 500 MG, BID
     Route: 065
  6. MINERALS\VITAMINS [Concomitant]
     Active Substance: MINERALS\VITAMINS
     Indication: Bone density abnormal
  7. CLOTRIMAZOLE [Concomitant]
     Active Substance: CLOTRIMAZOLE
     Indication: Candida infection
     Dosage: 10 MG, BID
     Route: 065
     Dates: start: 2023
  8. DAPSONE [Concomitant]
     Active Substance: DAPSONE
     Indication: Pneumocystis jirovecii pneumonia
     Dosage: 100 MG, QW
     Route: 065
     Dates: start: 2023
  9. PREDNISONE [Concomitant]
     Active Substance: PREDNISONE
     Indication: Transplant rejection
     Dosage: 30 MG, QD
     Route: 065
     Dates: start: 2018
  10. SIROLIMUS [Concomitant]
     Active Substance: SIROLIMUS
     Indication: Transplant rejection
     Dosage: 2 MG, QD
     Route: 065
     Dates: start: 2020
  11. TACROLIMUS [Concomitant]
     Active Substance: TACROLIMUS
     Indication: Transplant rejection
     Dosage: 4 MG, BID
     Route: 065
     Dates: start: 2018
  12. URSODIOL [Concomitant]
     Active Substance: URSODIOL
     Indication: Biliary obstruction
     Dosage: 300 MG, BID
     Route: 065
     Dates: start: 2018
  13. VALCYTE [Concomitant]
     Active Substance: VALGANCICLOVIR HYDROCHLORIDE
     Indication: Cytomegalovirus viraemia
     Dosage: 450 MG, QD
     Route: 065
     Dates: start: 2018
  14. VITAMINS [Concomitant]
     Active Substance: VITAMINS
     Indication: Pregnancy
     Dosage: 1 DOSAGE FORM, QD
     Route: 065
  15. MAGNESIUM [Concomitant]
     Active Substance: MAGNESIUM
     Indication: Product used for unknown indication
     Route: 065
  16. KEFLEX [Concomitant]
     Active Substance: CEPHALEXIN
     Indication: Urinary tract infection
     Dosage: 500 MG, BID
     Route: 065
     Dates: start: 20240606, end: 20240613

REACTIONS (5)
  - Premature delivery [Unknown]
  - Cholestasis [Unknown]
  - Thrombocytopenia [Unknown]
  - Maternal exposure during pregnancy [Unknown]
  - Normal newborn [Unknown]

NARRATIVE: CASE EVENT DATE: 20241109
